FAERS Safety Report 9259941 (Version 4)
Quarter: 2013Q3

REPORT INFORMATION
  Report Type: Spontaneous
  Country: DE (occurrence: DE)
  Receive Date: 20130429
  Receipt Date: 20130826
  Transmission Date: 20140515
  Serious: Yes (Hospitalization)
  Sender: FDA-Public Use
  Company Number: DE-JNJFOC-20130411119

PATIENT
  Age: 81 Year
  Sex: Male
  Weight: 67 kg

DRUGS (9)
  1. ZYTIGA [Suspect]
     Indication: PROSTATE CANCER METASTATIC
     Route: 048
     Dates: end: 20130419
  2. ZYTIGA [Suspect]
     Indication: PROSTATE CANCER METASTATIC
     Route: 048
     Dates: start: 20130214
  3. NOVALGIN [Suspect]
     Indication: PRODUCT USED FOR UNKNOWN INDICATION
     Route: 065
  4. ACETYLSALICYLIC ACID [Concomitant]
     Dosage: 1-0-0
     Route: 065
  5. PAMORELIN [Concomitant]
     Route: 065
  6. PAMORELIN [Concomitant]
     Route: 065
     Dates: start: 201305, end: 201305
  7. XGEVA [Concomitant]
     Route: 065
  8. XGEVA [Concomitant]
     Route: 065
     Dates: start: 201305, end: 201305
  9. CALCIGEN D [Concomitant]
     Route: 065

REACTIONS (3)
  - Granulocytopenia [Recovered/Resolved]
  - Platelet anisocytosis [Unknown]
  - Red blood cell count decreased [Unknown]
